FAERS Safety Report 13830161 (Version 1)
Quarter: 2017Q3

REPORT INFORMATION
  Report Type: Spontaneous
  Country: US (occurrence: US)
  Receive Date: 20170803
  Receipt Date: 20170803
  Transmission Date: 20171127
  Serious: No
  Sender: FDA-Public Use
  Company Number: US-SA-2017SA099722

PATIENT
  Sex: Male

DRUGS (20)
  1. POLYETHYLENE GLYCOL [Concomitant]
     Active Substance: POLYETHYLENE GLYCOLS
     Dosage: POWDER 3350 NF
  2. TRAMADOL HYDROCHLORIDE. [Concomitant]
     Active Substance: TRAMADOL HYDROCHLORIDE
  3. POTASSIUM CHLORIDE. [Concomitant]
     Active Substance: POTASSIUM CHLORIDE
     Dosage: 10MEQ ER
  4. ALLOPURINOL. [Concomitant]
     Active Substance: ALLOPURINOL
  5. FINASTERIDE. [Concomitant]
     Active Substance: FINASTERIDE
  6. PRALUENT [Suspect]
     Active Substance: ALIROCUMAB
     Route: 058
  7. ELIQUIS [Concomitant]
     Active Substance: APIXABAN
  8. HYDRALAZINE [Concomitant]
     Active Substance: HYDRALAZINE HYDROCHLORIDE
  9. HYDROCODONE BITARTRATE AND ACETAMINOPHEN [Concomitant]
     Active Substance: ACETAMINOPHEN\HYDROCODONE BITARTRATE
     Dosage: 5-325MG
  10. NITROSTAT [Concomitant]
     Active Substance: NITROGLYCERIN
     Route: 058
  11. TAMSULOSIN [Concomitant]
     Active Substance: TAMSULOSIN
  12. ALIROCUMAB PREFILLED PEN [Concomitant]
     Active Substance: ALIROCUMAB
  13. FUROSEMIDE. [Concomitant]
     Active Substance: FUROSEMIDE
  14. PANTOPRAZOLE [Concomitant]
     Active Substance: PANTOPRAZOLE
  15. ZOLPIDEM [Concomitant]
     Active Substance: ZOLPIDEM\ZOLPIDEM TARTRATE
  16. AMIODARONE [Concomitant]
     Active Substance: AMIODARONE
  17. ASPIRIN. [Concomitant]
     Active Substance: ASPIRIN
     Dosage: TAB 81 MG EC
  18. HYDROCODONE BITARTRATE AND ACETAMINOPHEN [Concomitant]
     Active Substance: ACETAMINOPHEN\HYDROCODONE BITARTRATE
     Dosage: 10-325MG
  19. DICYCLOMINE [Concomitant]
     Active Substance: DICYCLOMINE HYDROCHLORIDE
  20. KLOR-CON [Concomitant]
     Active Substance: POTASSIUM CHLORIDE
     Dosage: KLOR-CON 10 TAB 10MEQ ER

REACTIONS (2)
  - Back pain [Unknown]
  - Pain in extremity [Unknown]
